FAERS Safety Report 9129167 (Version 1)
Quarter: 2013Q1

REPORT INFORMATION
  Report Type: Spontaneous
  Country: US (occurrence: US)
  Receive Date: 20130228
  Receipt Date: 20130228
  Transmission Date: 20140127
  Serious: Yes (Other)
  Sender: FDA-Public Use
  Company Number: US-BAYER-2013-024472

PATIENT
  Age: 64 Year
  Sex: Female
  Weight: 68.03 kg

DRUGS (2)
  1. ALEVE CAPLET/TABLET,MIDOL EXTENDED RELIEF CAPLET [Suspect]
     Indication: SINUS CONGESTION
     Dosage: 2 DF, PRN
     Route: 048
  2. SYNTHROID [Concomitant]

REACTIONS (4)
  - Abasia [None]
  - Coordination abnormal [None]
  - Vertigo [None]
  - Initial insomnia [None]
